FAERS Safety Report 7341631-9 (Version None)
Quarter: 2011Q1

REPORT INFORMATION
  Report Type: 
  Country: None (occurrence: None)
  Receive Date: 20110228
  Receipt Date: 20110217
  Transmission Date: 20110831
  Serious: Yes (Death, Life-Threatening)
  Sender: FDA-Public Use
  Company Number: TAJPN-11-0088

PATIENT
  Age: 49 Year
  Sex: Female
  Weight: 50 kg

DRUGS (1)
  1. ABRAXANE [Suspect]
     Indication: BREAST CANCER METASTATIC
     Dosage: (307.84 MG)
     Dates: start: 20110119, end: 20110119

REACTIONS (20)
  - RESPIRATORY ARREST [None]
  - BLOOD CREATININE INCREASED [None]
  - RESTLESSNESS [None]
  - DISSEMINATED INTRAVASCULAR COAGULATION [None]
  - C-REACTIVE PROTEIN INCREASED [None]
  - COMA HEPATIC [None]
  - GAIT DISTURBANCE [None]
  - ENTERITIS INFECTIOUS [None]
  - WHITE BLOOD CELL COUNT DECREASED [None]
  - HAEMOGLOBIN DECREASED [None]
  - NEUTROPHIL COUNT DECREASED [None]
  - DEPRESSED LEVEL OF CONSCIOUSNESS [None]
  - HEPATIC FAILURE [None]
  - PLATELET COUNT DECREASED [None]
  - BLOOD UREA INCREASED [None]
  - BLOOD PH DECREASED [None]
  - BREAST CANCER [None]
  - NEOPLASM MALIGNANT [None]
  - ARTHRALGIA [None]
  - BLOOD PRESSURE DECREASED [None]
